FAERS Safety Report 5772228 (Version 3)
Quarter: 2016Q2

REPORT INFORMATION
  Report Type: Spontaneous
  Country: JP (occurrence: JP)
  Receive Date: 20050408
  Receipt Date: 20160523
  Transmission Date: 20160815
  Serious: Yes (Death)
  Sender: FDA-Public Use
  Company Number: JP-JNJFOC-20050306980

PATIENT
  Age: 47 Year
  Sex: Male
  Weight: 52 kg

DRUGS (85)
  1. REMICADE [Suspect]
     Active Substance: INFLIXIMAB
     Indication: CROHN^S DISEASE
     Route: 042
     Dates: start: 20030310
  2. PENTASA [Concomitant]
     Active Substance: MESALAMINE
     Indication: CROHN^S DISEASE
     Route: 048
     Dates: start: 20041201
  3. IMURAN [Concomitant]
     Active Substance: AZATHIOPRINE
     Indication: CROHN^S DISEASE
     Route: 048
     Dates: start: 20030222, end: 20030409
  4. TOPOTECIN [Concomitant]
     Active Substance: IRINOTECAN HYDROCHLORIDE
     Indication: CHEMOTHERAPY
     Dosage: 40 MG EVERY 1-3 WEEKS
     Route: 042
     Dates: start: 20031104, end: 20031104
  5. TOPOTECIN [Concomitant]
     Active Substance: IRINOTECAN HYDROCHLORIDE
     Indication: CHEMOTHERAPY
     Dosage: 40 MG EVERY 1-3 WEEKS
     Route: 042
     Dates: start: 20031113, end: 20031113
  6. TOPOTECIN [Concomitant]
     Active Substance: IRINOTECAN HYDROCHLORIDE
     Indication: CHEMOTHERAPY
     Dosage: 40 MG EVERY 1 TO 3 WEEKS
     Route: 042
     Dates: start: 20041005, end: 20041005
  7. SALAZOPYRIN [Concomitant]
     Active Substance: SULFASALAZINE
     Route: 065
     Dates: start: 197612
  8. LEUCOVORIN. [Concomitant]
     Active Substance: LEUCOVORIN
     Route: 042
     Dates: start: 20030407, end: 20030407
  9. LEUCOVORIN. [Concomitant]
     Active Substance: LEUCOVORIN
     Route: 042
     Dates: start: 20030428, end: 20030428
  10. LEUCOVORIN. [Concomitant]
     Active Substance: LEUCOVORIN
     Route: 042
     Dates: start: 20030708, end: 20030708
  11. TS-1 [Concomitant]
     Active Substance: GIMERACIL\OTERACIL\TEGAFUR
     Route: 048
     Dates: start: 20040518, end: 20040531
  12. CISPLATIN. [Concomitant]
     Active Substance: CISPLATIN
     Route: 042
     Dates: start: 20040420, end: 20040420
  13. ENTERAL NUTRITION [Concomitant]
     Active Substance: DIETARY SUPPLEMENT
  14. TOPOTECIN [Concomitant]
     Active Substance: IRINOTECAN HYDROCHLORIDE
     Indication: CHEMOTHERAPY
     Dosage: 40 MG EVERY 1-3 WEEKS
     Route: 042
     Dates: start: 20031007, end: 20031007
  15. TOPOTECIN [Concomitant]
     Active Substance: IRINOTECAN HYDROCHLORIDE
     Indication: CHEMOTHERAPY
     Dosage: 40 MG EVERY 1-3 WEEKS
     Route: 042
     Dates: start: 20040107, end: 20040107
  16. TOPOTECIN [Concomitant]
     Active Substance: IRINOTECAN HYDROCHLORIDE
     Indication: CHEMOTHERAPY
     Dosage: 40 MG EVERY 1-3 WEEKS
     Route: 042
     Dates: start: 20040127, end: 20040127
  17. TOPOTECIN [Concomitant]
     Active Substance: IRINOTECAN HYDROCHLORIDE
     Indication: CHEMOTHERAPY
     Dosage: 40 MG EVERY 1 TO 3 WEEKS
     Route: 042
     Dates: start: 20040831, end: 20040831
  18. 5-FU [Concomitant]
     Active Substance: FLUOROURACIL
     Route: 042
     Dates: start: 20030407, end: 20030407
  19. 5-FU [Concomitant]
     Active Substance: FLUOROURACIL
     Route: 042
     Dates: start: 20030617, end: 20030617
  20. 5-FU [Concomitant]
     Active Substance: FLUOROURACIL
     Route: 042
     Dates: start: 20030701, end: 20030701
  21. LEUCOVORIN. [Concomitant]
     Active Substance: LEUCOVORIN
     Route: 042
     Dates: start: 20030617, end: 20030617
  22. CISPLATIN. [Concomitant]
     Active Substance: CISPLATIN
     Route: 042
     Dates: start: 20040330, end: 20040330
  23. PREDONINE [Concomitant]
     Active Substance: PREDNISOLONE\PREDNISOLONE ACETATE\PREDNISOLONE SODIUM SUCCINATE
     Indication: CROHN^S DISEASE
     Route: 048
     Dates: start: 20031021, end: 20040329
  24. TOPOTECIN [Concomitant]
     Active Substance: IRINOTECAN HYDROCHLORIDE
     Indication: CHEMOTHERAPY
     Dosage: 40 MG EVERY 1 TO 3 WEEKS
     Route: 042
     Dates: start: 20040817, end: 20040817
  25. TOPOTECIN [Concomitant]
     Active Substance: IRINOTECAN HYDROCHLORIDE
     Indication: CHEMOTHERAPY
     Dosage: 40 MG EVERY 1 TO 3 WEEKS
     Route: 042
     Dates: start: 20040914, end: 20040914
  26. LEUCOVORIN. [Concomitant]
     Active Substance: LEUCOVORIN
     Route: 042
     Dates: start: 20030506, end: 20030506
  27. LEUCOVORIN. [Concomitant]
     Active Substance: LEUCOVORIN
     Route: 042
     Dates: start: 20030819, end: 20030819
  28. FURTULON [Concomitant]
     Active Substance: DOXIFLURIDINE
     Route: 065
     Dates: start: 20040817, end: 20041128
  29. CISPLATIN. [Concomitant]
     Active Substance: CISPLATIN
     Route: 042
     Dates: start: 20040427, end: 20040427
  30. CISPLATIN. [Concomitant]
     Active Substance: CISPLATIN
     Route: 042
     Dates: start: 20040622, end: 20040622
  31. TOPOTECIN [Concomitant]
     Active Substance: IRINOTECAN HYDROCHLORIDE
     Indication: CHEMOTHERAPY
     Dosage: 40 MG EVERY 1-3 WEEKS
     Route: 042
     Dates: start: 20031126, end: 20031126
  32. TOPOTECIN [Concomitant]
     Active Substance: IRINOTECAN HYDROCHLORIDE
     Indication: CHEMOTHERAPY
     Dosage: 40 MG EVERY 1-3 WEEKS
     Route: 042
     Dates: start: 20031205, end: 20031205
  33. TOPOTECIN [Concomitant]
     Active Substance: IRINOTECAN HYDROCHLORIDE
     Indication: CHEMOTHERAPY
     Dosage: 40 MG EVERY 1-3 WEEKS
     Route: 042
     Dates: start: 20040203, end: 20040203
  34. TOPOTECIN [Concomitant]
     Active Substance: IRINOTECAN HYDROCHLORIDE
     Indication: CHEMOTHERAPY
     Dosage: 40 MG EVERY 1 TO 3 WEEKS
     Route: 042
     Dates: start: 20040907, end: 20040907
  35. TOPOTECIN [Concomitant]
     Active Substance: IRINOTECAN HYDROCHLORIDE
     Indication: CHEMOTHERAPY
     Dosage: 40 MG EVERY 1 TO 3 WEEKS
     Route: 042
     Dates: start: 20041019, end: 20041019
  36. 5-FU [Concomitant]
     Active Substance: FLUOROURACIL
     Route: 042
     Dates: start: 20030421, end: 20030421
  37. 5-FU [Concomitant]
     Active Substance: FLUOROURACIL
     Route: 042
     Dates: start: 20030513, end: 20030513
  38. 5-FU [Concomitant]
     Active Substance: FLUOROURACIL
     Route: 042
     Dates: start: 20030805, end: 20030805
  39. LEUCOVORIN. [Concomitant]
     Active Substance: LEUCOVORIN
     Route: 042
     Dates: start: 20030805, end: 20030805
  40. LEUCOVORIN. [Concomitant]
     Active Substance: LEUCOVORIN
     Route: 042
     Dates: start: 20030414, end: 20030414
  41. LEUCOVORIN. [Concomitant]
     Active Substance: LEUCOVORIN
     Route: 042
     Dates: start: 20030513, end: 20030513
  42. TS-1 [Concomitant]
     Active Substance: GIMERACIL\OTERACIL\TEGAFUR
     Route: 048
     Dates: start: 20040420, end: 20040503
  43. CISPLATIN. [Concomitant]
     Active Substance: CISPLATIN
     Route: 042
     Dates: start: 20040720, end: 20040720
  44. TOPOTECIN [Concomitant]
     Active Substance: IRINOTECAN HYDROCHLORIDE
     Indication: CHEMOTHERAPY
     Dosage: 40 MG EVERY 1 TO 3 WEEKS
     Route: 042
     Dates: start: 20041116, end: 20041116
  45. TOPOTECIN [Concomitant]
     Active Substance: IRINOTECAN HYDROCHLORIDE
     Indication: CHEMOTHERAPY
     Dosage: 40 MG EVERY 1-3 WEEKS
     Route: 042
     Dates: start: 20030903, end: 20030905
  46. TOPOTECIN [Concomitant]
     Active Substance: IRINOTECAN HYDROCHLORIDE
     Indication: CHEMOTHERAPY
     Dosage: 40 MG EVERY 1-3 WEEKS
     Route: 042
     Dates: start: 20040210, end: 20040210
  47. TOPOTECIN [Concomitant]
     Active Substance: IRINOTECAN HYDROCHLORIDE
     Indication: CHEMOTHERAPY
     Dosage: 40 MG EVERY 1-3 WEEKS
     Route: 042
     Dates: start: 20040217, end: 20040217
  48. TOPOTECIN [Concomitant]
     Active Substance: IRINOTECAN HYDROCHLORIDE
     Indication: CHEMOTHERAPY
     Dosage: 40 MG EVERY 1 TO 3 WEEKS
     Route: 042
     Dates: start: 20040824, end: 20040824
  49. TOPOTECIN [Concomitant]
     Active Substance: IRINOTECAN HYDROCHLORIDE
     Indication: CHEMOTHERAPY
     Dosage: 40 MG EVERY 1 TO 3 WEEKS
     Route: 042
     Dates: start: 20040921, end: 20040921
  50. TOPOTECIN [Concomitant]
     Active Substance: IRINOTECAN HYDROCHLORIDE
     Indication: CHEMOTHERAPY
     Dosage: 40 MG EVERY 1 TO 3 WEEKS
     Route: 042
     Dates: start: 20041102, end: 20041102
  51. TOPOTECIN [Concomitant]
     Active Substance: IRINOTECAN HYDROCHLORIDE
     Indication: CHEMOTHERAPY
     Dosage: 40 MG EVERY 1 TO 3 WEEKS
     Route: 042
     Dates: start: 20041124, end: 20041124
  52. 5-FU [Concomitant]
     Active Substance: FLUOROURACIL
     Route: 042
     Dates: start: 20030428, end: 20030428
  53. LEUCOVORIN. [Concomitant]
     Active Substance: LEUCOVORIN
     Route: 042
     Dates: start: 20030610, end: 20030610
  54. LEUCOVORIN. [Concomitant]
     Active Substance: LEUCOVORIN
     Route: 042
     Dates: start: 20030819, end: 20030819
  55. TS-1 [Concomitant]
     Active Substance: GIMERACIL\OTERACIL\TEGAFUR
     Route: 048
     Dates: start: 20040323, end: 20040405
  56. TS-1 [Concomitant]
     Active Substance: GIMERACIL\OTERACIL\TEGAFUR
     Route: 048
     Dates: start: 20040713, end: 20040726
  57. CISPLATIN. [Concomitant]
     Active Substance: CISPLATIN
     Route: 042
     Dates: start: 20040323, end: 20040323
  58. CISPLATIN. [Concomitant]
     Active Substance: CISPLATIN
     Route: 042
     Dates: start: 20040615, end: 20040615
  59. REMICADE [Suspect]
     Active Substance: INFLIXIMAB
     Indication: CROHN^S DISEASE
     Route: 042
     Dates: start: 20030224
  60. STEROIDS NOS [Concomitant]
     Active Substance: UNSPECIFIED INGREDIENT
     Route: 065
     Dates: start: 197612
  61. 5-FU [Concomitant]
     Active Substance: FLUOROURACIL
     Route: 042
     Dates: start: 20030819, end: 20030819
  62. PREDONINE [Concomitant]
     Active Substance: PREDNISOLONE\PREDNISOLONE ACETATE\PREDNISOLONE SODIUM SUCCINATE
     Indication: CROHN^S DISEASE
     Route: 048
     Dates: start: 20030121, end: 20031020
  63. PREDONINE [Concomitant]
     Active Substance: PREDNISOLONE\PREDNISOLONE ACETATE\PREDNISOLONE SODIUM SUCCINATE
     Indication: CROHN^S DISEASE
     Route: 048
     Dates: start: 20040330, end: 20040530
  64. TOPOTECIN [Concomitant]
     Active Substance: IRINOTECAN HYDROCHLORIDE
     Indication: CHEMOTHERAPY
     Dosage: 40 MG EVERY 1-3 WEEKS
     Route: 042
     Dates: start: 20031001, end: 20031001
  65. TOPOTECIN [Concomitant]
     Active Substance: IRINOTECAN HYDROCHLORIDE
     Indication: CHEMOTHERAPY
     Dosage: 40 MG EVERY 1-3 WEEKS
     Route: 042
     Dates: start: 20031027, end: 20031027
  66. TOPOTECIN [Concomitant]
     Active Substance: IRINOTECAN HYDROCHLORIDE
     Indication: CHEMOTHERAPY
     Dosage: 40 MG EVERY 1-3 WEEKS
     Route: 042
     Dates: start: 20040224, end: 20040224
  67. TOPOTECIN [Concomitant]
     Active Substance: IRINOTECAN HYDROCHLORIDE
     Indication: CHEMOTHERAPY
     Dosage: 40 MG EVERY 1 TO 3 WEEKS
     Route: 042
     Dates: start: 20041109, end: 20041109
  68. TOPOTECIN [Concomitant]
     Active Substance: IRINOTECAN HYDROCHLORIDE
     Indication: CHEMOTHERAPY
     Dosage: 40 MG EVERY 1-3 WEEKS
     Route: 042
     Dates: start: 20030827, end: 20030829
  69. 5-FU [Concomitant]
     Active Substance: FLUOROURACIL
     Route: 042
     Dates: start: 20030414, end: 20030414
  70. 5-FU [Concomitant]
     Active Substance: FLUOROURACIL
     Route: 042
     Dates: start: 20030506, end: 20030506
  71. FURTULON [Concomitant]
     Active Substance: DOXIFLURIDINE
     Route: 065
     Dates: start: 20030222, end: 20040224
  72. PREDONINE [Concomitant]
     Active Substance: PREDNISOLONE\PREDNISOLONE ACETATE\PREDNISOLONE SODIUM SUCCINATE
     Indication: CROHN^S DISEASE
     Route: 048
     Dates: start: 20040601, end: 20041201
  73. TOPOTECIN [Concomitant]
     Active Substance: IRINOTECAN HYDROCHLORIDE
     Indication: CHEMOTHERAPY
     Dosage: 40 MG EVERY 1-3 WEEKS
     Route: 042
     Dates: start: 20031216, end: 20031216
  74. TOPOTECIN [Concomitant]
     Active Substance: IRINOTECAN HYDROCHLORIDE
     Indication: CHEMOTHERAPY
     Dosage: 40 MG EVERY 1-3 WEEKS
     Route: 042
     Dates: start: 20040114, end: 20040114
  75. 5-FU [Concomitant]
     Active Substance: FLUOROURACIL
     Route: 042
     Dates: start: 20030610, end: 20030613
  76. 5-FU [Concomitant]
     Active Substance: FLUOROURACIL
     Route: 042
     Dates: start: 20030624, end: 20030624
  77. 5-FU [Concomitant]
     Active Substance: FLUOROURACIL
     Route: 042
     Dates: start: 20030708, end: 20030708
  78. LEUCOVORIN. [Concomitant]
     Active Substance: LEUCOVORIN
     Route: 042
     Dates: start: 20030421, end: 20030421
  79. LEUCOVORIN. [Concomitant]
     Active Substance: LEUCOVORIN
     Route: 042
     Dates: start: 20030513, end: 20030513
  80. LEUCOVORIN. [Concomitant]
     Active Substance: LEUCOVORIN
     Route: 042
     Dates: start: 20030624, end: 20030624
  81. LEUCOVORIN. [Concomitant]
     Active Substance: LEUCOVORIN
     Route: 042
     Dates: start: 20030701, end: 20030701
  82. TS-1 [Concomitant]
     Active Substance: GIMERACIL\OTERACIL\TEGAFUR
     Route: 048
     Dates: start: 20040615, end: 20040628
  83. CISPLATIN. [Concomitant]
     Active Substance: CISPLATIN
     Route: 042
     Dates: start: 20040525, end: 20040525
  84. CISPLATIN. [Concomitant]
     Active Substance: CISPLATIN
     Route: 042
     Dates: start: 20040518, end: 20040518
  85. CISPLATIN. [Concomitant]
     Active Substance: CISPLATIN
     Route: 042
     Dates: start: 20040713, end: 20040713

REACTIONS (2)
  - Nausea [Recovered/Resolved]
  - Anal cancer [Fatal]

NARRATIVE: CASE EVENT DATE: 20020423
